FAERS Safety Report 19862258 (Version 1)
Quarter: 2021Q3

REPORT INFORMATION
  Report Type: Spontaneous
  Country: US (occurrence: US)
  Receive Date: 20210921
  Receipt Date: 20210921
  Transmission Date: 20211014
  Serious: No
  Sender: FDA-Public Use
  Company Number: US-GLENMARK PHARMACEUTICALS-2021GMK054720

PATIENT

DRUGS (5)
  1. MUPIROCIN OINTMENT USP, 2% [Suspect]
     Active Substance: MUPIROCIN
     Dosage: UNK, SINGLE
     Route: 061
     Dates: start: 20210622
  2. MUPIROCIN OINTMENT USP, 2% [Suspect]
     Active Substance: MUPIROCIN
     Indication: ARTHROPOD BITE
     Dosage: UNK, SINGLE
     Route: 061
     Dates: start: 2021
  3. MUPIROCIN OINTMENT USP, 2% [Suspect]
     Active Substance: MUPIROCIN
     Indication: WOUND INFECTION
     Dosage: UNK, TID
     Route: 061
     Dates: start: 20210509
  4. DILANTIN [Concomitant]
     Active Substance: PHENYTOIN
     Indication: SEIZURE
     Dosage: UNK
     Route: 065
  5. ESTRADIOL. [Concomitant]
     Active Substance: ESTRADIOL
     Indication: POSTOPERATIVE CARE
     Dosage: UNK, HALF DOSE
     Route: 065

REACTIONS (3)
  - Application site papules [Unknown]
  - Application site pustules [Unknown]
  - Drug effective for unapproved indication [Unknown]

NARRATIVE: CASE EVENT DATE: 20210509
